FAERS Safety Report 11231386 (Version 3)
Quarter: 2015Q3

REPORT INFORMATION
  Report Type: Spontaneous
  Country: BR (occurrence: BR)
  Receive Date: 20150701
  Receipt Date: 20150901
  Transmission Date: 20151125
  Serious: Yes (Hospitalization, Other)
  Sender: FDA-Public Use
  Company Number: BR-ASTRAZENECA-2015SE62812

PATIENT
  Age: 53 Year
  Sex: Female
  Weight: 114 kg

DRUGS (16)
  1. ASA INFANTIL [Concomitant]
     Active Substance: ASPIRIN
     Indication: ANTICOAGULANT THERAPY
     Dosage: DAILY
     Route: 048
  2. CYCLOBENZAPRINE [Concomitant]
     Active Substance: CYCLOBENZAPRINE
     Indication: PAIN
  3. GLIFAGE XR [Suspect]
     Active Substance: METFORMIN HYDROCHLORIDE
     Indication: DIABETES MELLITUS MANAGEMENT
     Dosage: 500MG, TWO TIMES A DAY, NON AZ
     Route: 048
  4. LOSARTAN. [Concomitant]
     Active Substance: LOSARTAN
     Indication: BLOOD PRESSURE ABNORMAL
     Dosage: DAILY
     Route: 048
     Dates: start: 2012
  5. ALDACTONE [Concomitant]
     Active Substance: SPIRONOLACTONE
     Indication: BLOOD PRESSURE ABNORMAL
     Dosage: DAILY
     Route: 048
     Dates: start: 2005
  6. PANTOCAL [Concomitant]
     Indication: OESOPHAGITIS
     Dosage: DAILY
     Route: 048
     Dates: start: 2012
  7. FOLIC ACID. [Concomitant]
     Active Substance: FOLIC ACID
     Dosage: THREE TIMES A DAY
     Route: 048
     Dates: start: 2013
  8. MAREVAN [Concomitant]
     Active Substance: WARFARIN SODIUM
     Indication: THROMBOSIS PROPHYLAXIS
     Dates: start: 2010, end: 2013
  9. SYMBICORT [Suspect]
     Active Substance: BUDESONIDE\FORMOTEROL FUMARATE DIHYDRATE
     Indication: ASTHMA
     Dosage: ALENIA, UNKNOWN
     Route: 055
  10. MODURETIC 5-50 [Suspect]
     Active Substance: AMILORIDE HYDROCHLORIDE\HYDROCHLOROTHIAZIDE
     Indication: BLOOD PRESSURE ABNORMAL
     Route: 048
     Dates: start: 2005
  11. DIPYRONE [Concomitant]
     Active Substance: DIPYRONE
     Indication: PAIN
     Dosage: AS REQUIRED
     Route: 048
     Dates: start: 2011
  12. VENLAFAXINE [Concomitant]
     Active Substance: VENLAFAXINE HYDROCHLORIDE
     Indication: DEPRESSION
     Dosage: DAILY
     Route: 048
     Dates: start: 2011
  13. SYMBICORT [Suspect]
     Active Substance: BUDESONIDE\FORMOTEROL FUMARATE DIHYDRATE
     Indication: ASTHMA
     Dosage: 320/9 MCG, TWO TIMES A DAY
     Route: 055
     Dates: start: 201502
  14. PURAN [Concomitant]
     Active Substance: LEVOTHYROXINE SODIUM
     Indication: HYPOTHYROIDISM
     Dosage: DAILY
     Route: 048
     Dates: start: 2013
  15. INSULIN [Concomitant]
     Active Substance: INSULIN NOS
     Indication: DIABETES MELLITUS MANAGEMENT
     Dosage: AS REQUIRED
     Route: 042
  16. GLUCOSAMINE [Concomitant]
     Active Substance: GLUCOSAMINE
     Indication: OSTEOARTHRITIS

REACTIONS (9)
  - Thrombosis [Unknown]
  - Pulmonary embolism [Recovered/Resolved with Sequelae]
  - Fatigue [Not Recovered/Not Resolved]
  - Asthma [Unknown]
  - Swelling [Not Recovered/Not Resolved]
  - Dyspnoea [Recovering/Resolving]
  - Asthenia [Not Recovered/Not Resolved]
  - Apathy [Not Recovered/Not Resolved]
  - Pain in extremity [Not Recovered/Not Resolved]

NARRATIVE: CASE EVENT DATE: 2010
